FAERS Safety Report 15843389 (Version 3)
Quarter: 2019Q1

REPORT INFORMATION
  Report Type: Spontaneous
  Country: JP (occurrence: JP)
  Receive Date: 20190118
  Receipt Date: 20190206
  Transmission Date: 20190417
  Serious: Yes (Death, Hospitalization, Disabling, Other)
  Sender: FDA-Public Use
  Company Number: JP-009507513-1901JPN000567J

PATIENT
  Age: 77 Year
  Sex: Male
  Weight: 71 kg

DRUGS (1)
  1. KEYTRUDA [Suspect]
     Active Substance: PEMBROLIZUMAB
     Indication: TRANSITIONAL CELL CARCINOMA
     Dosage: 200 MILLIGRAM, Q3W
     Route: 041
     Dates: start: 20181214, end: 20181214

REACTIONS (5)
  - Myasthenia gravis [Fatal]
  - Hepatic function abnormal [Unknown]
  - Gaze palsy [Unknown]
  - Myocarditis [Fatal]
  - Cardiac failure [Unknown]

NARRATIVE: CASE EVENT DATE: 20190104
